FAERS Safety Report 10932879 (Version 1)
Quarter: 2015Q1

REPORT INFORMATION
  Report Type: Spontaneous
  Country: US (occurrence: None)
  Receive Date: 20150319
  Receipt Date: 20150319
  Transmission Date: 20150721
  Serious: No
  Sender: FDA-Public Use
  Company Number: 2014CT000213

PATIENT
  Age: 56 Year
  Sex: Female
  Weight: 96.62 kg

DRUGS (8)
  1. LAMICTAL [Concomitant]
     Active Substance: LAMOTRIGINE
  2. TEGRETPOL [Concomitant]
  3. VIMPAT [Concomitant]
     Active Substance: LACOSAMIDE
  4. LORAZEPAM. [Concomitant]
     Active Substance: LORAZEPAM
  5. LOMOTIL [Concomitant]
     Active Substance: ATROPINE SULFATE\DIPHENOXYLATE HYDROCHLORIDE
  6. ALENDRONATE [Concomitant]
     Active Substance: ALENDRONATE SODIUM
  7. KORLYM [Suspect]
     Active Substance: MIFEPRISTONE
     Indication: CUSHING^S SYNDROME
     Dates: start: 20140718
  8. DIGOXIN. [Concomitant]
     Active Substance: DIGOXIN

REACTIONS (3)
  - Musculoskeletal stiffness [None]
  - Thyroid function test abnormal [None]
  - Muscular weakness [None]

NARRATIVE: CASE EVENT DATE: 20140828
